FAERS Safety Report 8159092-9 (Version None)
Quarter: 2012Q1

REPORT INFORMATION
  Report Type: 
  Country: None (occurrence: None)
  Receive Date: 20120217
  Receipt Date: 20120209
  Transmission Date: 20120608
  Serious: Yes (Hospitalization)
  Sender: FDA-Public Use
  Company Number: 2012-000499

PATIENT
  Age: 77 Year
  Sex: Female

DRUGS (4)
  1. ATELVIA [Suspect]
     Indication: OSTEOPOROSIS
     Dosage: 35 MG, ONCE WEEKLY, TOOK FIRST DOSE, ORAL
     Route: 048
     Dates: start: 20120128
  2. METOPROLOL TARTRATE [Concomitant]
  3. VITAMIN D [Concomitant]
  4. AMLODIPINE [Concomitant]

REACTIONS (2)
  - CHEST DISCOMFORT [None]
  - CHEST PAIN [None]
